FAERS Safety Report 23936995 (Version 1)
Quarter: 2024Q2

REPORT INFORMATION
  Report Type: Spontaneous
  Country: PT (occurrence: PT)
  Receive Date: 20240604
  Receipt Date: 20240604
  Transmission Date: 20240716
  Serious: Yes (Other)
  Sender: FDA-Public Use
  Company Number: PT-MLMSERVICE-20240513-PI058904-00201-1

PATIENT
  Sex: Female

DRUGS (1)
  1. LIDOCAINE [Suspect]
     Active Substance: LIDOCAINE
     Indication: Epidural analgesia
     Dosage: UNK (SEQUENTIAL BLOCK), BOLUS
     Route: 008

REACTIONS (3)
  - Motor dysfunction [Unknown]
  - Nerve block [Unknown]
  - Hypotension [Unknown]
